FAERS Safety Report 20930395 (Version 1)
Quarter: 2022Q2

REPORT INFORMATION
  Report Type: Spontaneous
  Country: IT (occurrence: IT)
  Receive Date: 20220608
  Receipt Date: 20220608
  Transmission Date: 20220721
  Serious: Yes (Other)
  Sender: FDA-Public Use
  Company Number: IT-KYOWAKIRIN-2022BKK008566

PATIENT

DRUGS (3)
  1. POTELIGEO [Suspect]
     Active Substance: MOGAMULIZUMAB-KPKC
     Indication: Cutaneous T-cell lymphoma
     Dosage: UNK
     Route: 065
     Dates: start: 202105, end: 202111
  2. POTELIGEO [Suspect]
     Active Substance: MOGAMULIZUMAB-KPKC
     Dosage: UNK, (4 DOSES, DAY 1 AND 15)
     Route: 065
     Dates: start: 202201, end: 202204
  3. POTELIGEO [Suspect]
     Active Substance: MOGAMULIZUMAB-KPKC
     Dosage: UNK
     Route: 065
     Dates: start: 202205

REACTIONS (2)
  - Diverticulitis [Unknown]
  - Diverticular perforation [Unknown]

NARRATIVE: CASE EVENT DATE: 20211101
